FAERS Safety Report 19988731 (Version 1)
Quarter: 2021Q4

REPORT INFORMATION
  Report Type: Spontaneous
  Country: LK (occurrence: LK)
  Receive Date: 20211024
  Receipt Date: 20211024
  Transmission Date: 20220303
  Serious: Yes (Life-Threatening, Hospitalization, Other)
  Sender: FDA-Public Use
  Company Number: LK-LUPIN PHARMACEUTICALS INC.-2021-20321

PATIENT
  Age: 51 Year
  Sex: Male

DRUGS (4)
  1. PYRIDOSTIGMINE [Suspect]
     Active Substance: PYRIDOSTIGMINE
     Indication: Congenital myasthenic syndrome
     Dosage: UNK
     Route: 065
  2. ALBUTEROL SULFATE [Suspect]
     Active Substance: ALBUTEROL SULFATE
     Indication: Congenital myasthenic syndrome
     Dosage: 04 MILLIGRAM, TID (UP TO 4 MG)
     Route: 065
  3. FLUOXETINE [Concomitant]
     Active Substance: FLUOXETINE HYDROCHLORIDE
     Indication: Congenital myasthenic syndrome
     Dosage: 80 MILLIGRAM, QD
     Route: 065
  4. FLUOXETINE [Concomitant]
     Active Substance: FLUOXETINE HYDROCHLORIDE
     Dosage: 120 MILLIGRAM, QD, DOSE ESCALATED
     Route: 065

REACTIONS (4)
  - Respiratory failure [Unknown]
  - Sepsis [Unknown]
  - Drug ineffective [Unknown]
  - Off label use [None]
